FAERS Safety Report 6676564-4 (Version None)
Quarter: 2010Q2

REPORT INFORMATION
  Report Type: 
  Country: None (occurrence: None)
  Receive Date: 20100412
  Receipt Date: 20100401
  Transmission Date: 20101027
  Serious: Yes (Other)
  Sender: FDA-Public Use
  Company Number: GB-PFIZER INC-2010043136

PATIENT
  Sex: Female

DRUGS (1)
  1. COLESTID [Suspect]

REACTIONS (1)
  - DIABETES MELLITUS [None]
